FAERS Safety Report 6152922-1 (Version None)
Quarter: 2009Q2

REPORT INFORMATION
  Report Type: 
  Country: None (occurrence: None)
  Receive Date: 20090413
  Receipt Date: 20090331
  Transmission Date: 20091009
  Serious: Yes (Other)
  Sender: FDA-Public Use
  Company Number: US-ELI_LILLY_AND_COMPANY-US200903007843

PATIENT
  Sex: Female

DRUGS (12)
  1. CYMBALTA [Suspect]
     Dosage: 1 D/F, UNK
     Route: 048
     Dates: start: 20070101, end: 20090101
  2. KETEK [Concomitant]
     Indication: LYME DISEASE
     Dosage: 800 MG, 5/W
     Dates: start: 20070101, end: 20090212
  3. IRON [Concomitant]
     Indication: IRON DEFICIENCY ANAEMIA
     Route: 030
     Dates: start: 20090101, end: 20090101
  4. FLAGYL [Concomitant]
     Indication: LYME DISEASE
     Route: 048
     Dates: start: 20070101, end: 20090101
  5. VITAMIN B-12 [Concomitant]
     Dosage: UNK, UNK
     Dates: start: 20070101, end: 20090101
  6. MINICYCLINE [Concomitant]
     Indication: LYME DISEASE
     Dosage: 100 MG, 2/D
     Route: 048
     Dates: start: 20070101, end: 20090101
  7. NYSTATIN [Concomitant]
     Indication: FUNGAL INFECTION
     Route: 048
     Dates: start: 20070101, end: 20090101
  8. VALIUM [Concomitant]
     Indication: SLEEP DISORDER
     Dates: start: 20070101, end: 20090101
  9. XANAX [Concomitant]
     Indication: SLEEP DISORDER
     Dosage: UNK, UNK
     Dates: start: 20070101, end: 20090101
  10. PLAQUENIL [Concomitant]
     Dosage: UNK, UNK
     Dates: start: 20070101, end: 20090101
  11. HOMEOPATIC PREPARATION [Concomitant]
     Dates: end: 20090101
  12. UNSPECIFIED HERBAL [Concomitant]
     Dates: end: 20090101

REACTIONS (10)
  - ALANINE AMINOTRANSFERASE INCREASED [None]
  - ASPARTATE AMINOTRANSFERASE INCREASED [None]
  - BLOOD LACTATE DEHYDROGENASE INCREASED [None]
  - DYSGEUSIA [None]
  - HEART RATE INCREASED [None]
  - HEART RATE IRREGULAR [None]
  - HEPATIC ENZYME INCREASED [None]
  - IRON DEFICIENCY ANAEMIA [None]
  - NAUSEA [None]
  - PYREXIA [None]
